FAERS Safety Report 14250167 (Version 6)
Quarter: 2018Q1

REPORT INFORMATION
  Report Type: Spontaneous
  Country: US (occurrence: US)
  Receive Date: 20171205
  Receipt Date: 20180201
  Transmission Date: 20180508
  Serious: Yes (Hospitalization)
  Sender: FDA-Public Use
  Company Number: US-UNITED THERAPEUTICS-UNT-2017-017134

PATIENT
  Age: 57 Year
  Sex: Male

DRUGS (11)
  1. REMODULIN [Suspect]
     Active Substance: TREPROSTINIL
     Dosage: 0.0529 ?G/KG, CONTINUING
     Route: 058
     Dates: start: 20171222
  2. REMODULIN [Suspect]
     Active Substance: TREPROSTINIL
     Dosage: 0.027 ?G/KG, 0.036 ML/HR
     Route: 058
  3. REMODULIN [Suspect]
     Active Substance: TREPROSTINIL
     Dosage: 0.054 ?G/KG, CONTINUING
     Route: 058
     Dates: start: 20171016, end: 20171222
  4. AMBRISENTAN [Suspect]
     Active Substance: AMBRISENTAN
     Indication: PULMONARY ARTERIAL HYPERTENSION
     Dosage: 10 MG, QD
     Route: 065
     Dates: start: 20130313
  5. REMODULIN [Suspect]
     Active Substance: TREPROSTINIL
     Dosage: 0.040 ML/HR
     Route: 058
  6. REMODULIN [Suspect]
     Active Substance: TREPROSTINIL
     Indication: PULMONARY ARTERIAL HYPERTENSION
     Dosage: 0.027 ?G/KG, CONTINUING
     Route: 058
     Dates: start: 20171012
  7. REMODULIN [Suspect]
     Active Substance: TREPROSTINIL
     Dosage: 0.036 ML/HR
     Route: 058
  8. ADCIRCA [Suspect]
     Active Substance: TADALAFIL
     Dosage: 20 MG, BID
     Route: 065
  9. ADCIRCA [Suspect]
     Active Substance: TADALAFIL
     Indication: PULMONARY ARTERIAL HYPERTENSION
     Dosage: 40 MG, QD
     Route: 065
     Dates: start: 201303
  10. REMODULIN [Suspect]
     Active Substance: TREPROSTINIL
     Dosage: 5 MG, UNK
     Route: 058
  11. REMODULIN [Suspect]
     Active Substance: TREPROSTINIL
     Dosage: 0.0648 ?G/KG, CONTINUING
     Route: 058
     Dates: start: 20171017

REACTIONS (8)
  - Pain [Not Recovered/Not Resolved]
  - Pain in extremity [Unknown]
  - Pain in jaw [Unknown]
  - Diarrhoea [Unknown]
  - Vomiting [Unknown]
  - Abdominal discomfort [Unknown]
  - Loss of consciousness [Unknown]
  - Headache [Recovering/Resolving]

NARRATIVE: CASE EVENT DATE: 20171129
